FAERS Safety Report 25043320 (Version 1)
Quarter: 2025Q1

REPORT INFORMATION
  Report Type: Spontaneous
  Country: IN (occurrence: IN)
  Receive Date: 20250305
  Receipt Date: 20250305
  Transmission Date: 20250409
  Serious: Yes (Hospitalization, Other)
  Sender: ALKEM
  Company Number: IN-ALKEM LABORATORIES LIMITED-IN-ALKEM-2025-01992

PATIENT
  Sex: Female

DRUGS (3)
  1. CEFIXIME [Suspect]
     Active Substance: CEFIXIME
     Indication: Pyrexia
     Dosage: 10 MILLIGRAM/KILOGRAM, QD (SYRUP)
     Route: 048
  2. CEFIXIME [Suspect]
     Active Substance: CEFIXIME
     Indication: Cough
  3. CEFIXIME [Suspect]
     Active Substance: CEFIXIME
     Indication: Nasopharyngitis

REACTIONS (1)
  - Acute generalised exanthematous pustulosis [Recovering/Resolving]
